FAERS Safety Report 15877759 (Version 1)
Quarter: 2019Q1

REPORT INFORMATION
  Report Type: Spontaneous
  Country: CA (occurrence: CA)
  Receive Date: 20190128
  Receipt Date: 20190128
  Transmission Date: 20190417
  Serious: Yes (Other)
  Sender: FDA-Public Use
  Company Number: CA-TEVA-2019-CA-1005454

PATIENT
  Age: 78 Year
  Sex: Female
  Weight: 86 kg

DRUGS (2)
  1. TEVA-VALSARTAN/HCTZ [Suspect]
     Active Substance: HYDROCHLOROTHIAZIDE\VALSARTAN
     Route: 048
  2. SANDOZ VALSARTAN HCT 80MG/12.5MG [Suspect]
     Active Substance: HYDROCHLOROTHIAZIDE\VALSARTAN
     Route: 048

REACTIONS (9)
  - Muscle spasms [Recovered/Resolved]
  - Epistaxis [Recovered/Resolved]
  - Abnormal dreams [Recovered/Resolved]
  - Vomiting [Recovered/Resolved]
  - Product complaint [Recovered/Resolved]
  - Cold sweat [Recovered/Resolved]
  - Confusional state [Recovered/Resolved]
  - Headache [Recovered/Resolved]
  - Nausea [Recovered/Resolved]
